FAERS Safety Report 4566393-X (Version None)
Quarter: 2005Q1

REPORT INFORMATION
  Report Type: 
  Country: None (occurrence: None)
  Receive Date: 20050126
  Receipt Date: 20050126
  Transmission Date: 20050727
  Serious: No
  Sender: FDA-Public Use
  Company Number: None

PATIENT
  Sex: Female
  Weight: 43.0917 kg

DRUGS (1)
  1. NITREK   0.2MG/HR   BERTEK PHARMACEUTICALS INC. [Suspect]
     Indication: ANGINA PECTORIS
     Dosage: 0.2MG/HR   QD   TOPICAL
     Route: 061
     Dates: start: 20000101, end: 20000120

REACTIONS (1)
  - APPLICATION SITE DERMATITIS [None]
